FAERS Safety Report 11629708 (Version 1)
Quarter: 2015Q4

REPORT INFORMATION
  Report Type: Spontaneous
  Country: JP (occurrence: JP)
  Receive Date: 20151014
  Receipt Date: 20151014
  Transmission Date: 20160304
  Serious: Yes (Life-Threatening, Other)
  Sender: FDA-Public Use
  Company Number: JP-PFIZER INC-2015133789

PATIENT
  Age: 65 Year
  Sex: Male
  Weight: 66.9 kg

DRUGS (16)
  1. LYRICA [Suspect]
     Active Substance: PREGABALIN
     Indication: SENSORY DISTURBANCE
     Dosage: 75 MG, 2X/DAY
     Route: 048
     Dates: start: 20110921, end: 20111213
  2. TERNELIN [Concomitant]
     Active Substance: TIZANIDINE
     Dosage: 1 MG, 2X/DAY
  3. PRANLUKAST [Concomitant]
     Active Substance: PRANLUKAST
     Indication: RHINITIS PERENNIAL
     Dosage: 225 MG, 2X/DAY
     Dates: start: 20120926
  4. DEPAS [Concomitant]
     Active Substance: ETIZOLAM
     Indication: INSOMNIA
     Dosage: 1 MG, 2X/DAY
     Dates: start: 20050216
  5. MYSLEE [Concomitant]
     Active Substance: ZOLPIDEM TARTRATE
     Dosage: 5 MG, 1X/DAY
  6. LYRICA [Suspect]
     Active Substance: PREGABALIN
     Dosage: 225 MG, 150 MG, AND 150 MG DAILY
     Route: 048
     Dates: start: 20141217, end: 20150507
  7. LYRICA [Suspect]
     Active Substance: PREGABALIN
     Dosage: 225 MG, 2X/DAY
     Route: 048
     Dates: start: 20140512, end: 20140930
  8. CERCINE [Concomitant]
     Active Substance: DIAZEPAM
     Indication: HYPOTONIA
     Dosage: 4 MG OR 2 MG, 2X/DAY
  9. PRANLUKAST [Concomitant]
     Active Substance: PRANLUKAST
     Indication: NASAL CONGESTION
  10. OMEPRAL [Concomitant]
     Active Substance: OMEPRAZOLE
     Indication: GASTROOESOPHAGEAL REFLUX DISEASE
     Dosage: 10 MG, 1X/DAY
     Dates: start: 20091120
  11. MYSLEE [Concomitant]
     Active Substance: ZOLPIDEM TARTRATE
     Indication: INSOMNIA
     Dosage: 10 MG, 1X/DAY
     Dates: start: 20080412
  12. LYRICA [Suspect]
     Active Substance: PREGABALIN
     Indication: PAIN
     Dosage: 150 MG, 2X/DAY
     Route: 048
     Dates: start: 20111214, end: 20140511
  13. DANTRIUM [Concomitant]
     Active Substance: DANTROLENE SODIUM
     Dosage: 25 MG, 2X/DAY OR 1X/DAY
  14. TAMSULOSIN HYDROCHLORIDE. [Concomitant]
     Active Substance: TAMSULOSIN HYDROCHLORIDE
     Indication: DYSURIA
     Dosage: 0.2 MG, 1X/DAY
  15. LYRICA [Suspect]
     Active Substance: PREGABALIN
     Dosage: 225 MG AND 150 MG DAILY
     Route: 048
     Dates: start: 20141001, end: 20141216
  16. SM [Concomitant]
     Indication: ABDOMINAL DISCOMFORT
     Dosage: 1.3 G, 2X/DAY

REACTIONS (18)
  - Cardiomegaly [Recovered/Resolved]
  - Aspiration [Unknown]
  - C-reactive protein increased [Unknown]
  - Haemoglobin decreased [Unknown]
  - Vasodilatation [Recovered/Resolved]
  - Lower limb fracture [Unknown]
  - Neuralgia [Unknown]
  - Muscle tightness [Unknown]
  - Blood chloride decreased [Unknown]
  - Pleural effusion [Recovered/Resolved]
  - Gastric fistula [Unknown]
  - Blood sodium decreased [Unknown]
  - Sputum increased [Unknown]
  - Pulmonary oedema [Recovered/Resolved]
  - Femur fracture [Recovered/Resolved]
  - Condition aggravated [Unknown]
  - Haematocrit decreased [Unknown]
  - Red blood cell count abnormal [Unknown]

NARRATIVE: CASE EVENT DATE: 20120825
